FAERS Safety Report 21891365 (Version 1)
Quarter: 2023Q1

REPORT INFORMATION
  Report Type: Spontaneous
  Country: US (occurrence: None)
  Receive Date: 20230119
  Receipt Date: 20230119
  Transmission Date: 20230418
  Serious: No
  Sender: FDA-Public Use
  Company Number: None

PATIENT
  Age: 76 Year
  Sex: Female
  Weight: 82.6 kg

DRUGS (21)
  1. TASIGNA [Suspect]
     Active Substance: NILOTINIB
     Indication: Chronic myeloid leukaemia
     Dosage: FREQUENCY : DAILY;?
     Route: 048
     Dates: start: 202208
  2. ALBUTEROL [Concomitant]
     Active Substance: ALBUTEROL
  3. ALPHA LIPOIC ACID [Concomitant]
     Active Substance: .ALPHA.-LIPOIC ACID
  4. AMOXICILLIN [Concomitant]
     Active Substance: AMOXICILLIN
  5. APPLE CIDER VINEGAR [Concomitant]
     Active Substance: APPLE CIDER VINEGAR
  6. BACTRIM [Concomitant]
     Active Substance: SULFAMETHOXAZOLE\TRIMETHOPRIM
  7. BLACK SEED OIL [Concomitant]
  8. CANNABIDIOL [Concomitant]
     Active Substance: CANNABIDIOL
  9. CYCLOBENZAPRINE [Concomitant]
     Active Substance: CYCLOBENZAPRINE
  10. DOXYCYCLINE [Concomitant]
     Active Substance: DOXYCYCLINE
  11. EXFORGE HCT [Concomitant]
     Active Substance: AMLODIPINE BESYLATE\HYDROCHLOROTHIAZIDE\VALSARTAN
  12. EZETIMIBE [Concomitant]
     Active Substance: EZETIMIBE
  13. GABAPENTIN [Concomitant]
     Active Substance: GABAPENTIN
  14. KRILL OIL [Concomitant]
     Active Substance: DIETARY SUPPLEMENT\KRILL OIL
  15. LYRICA [Concomitant]
     Active Substance: PREGABALIN
  16. MOTRIN IB [Concomitant]
     Active Substance: IBUPROFEN
  17. NEUROPAWAY [Concomitant]
  18. NORCO [Concomitant]
     Active Substance: ACETAMINOPHEN\HYDROCODONE BITARTRATE
  19. ROPINIROLE [Concomitant]
     Active Substance: ROPINIROLE
  20. TERRY NATURAL FOOT AND NERVE [Concomitant]
  21. VOLTAREN [Concomitant]
     Active Substance: DICLOFENAC SODIUM

REACTIONS (2)
  - Drug intolerance [None]
  - Therapy interrupted [None]
